FAERS Safety Report 7700950-4 (Version None)
Quarter: 2011Q3

REPORT INFORMATION
  Report Type: 
  Country: None (occurrence: None)
  Receive Date: 20110822
  Receipt Date: 20110609
  Transmission Date: 20111222
  Serious: Yes (Hospitalization)
  Sender: FDA-Public Use
  Company Number: US-AMGEN-USASP2011027249

PATIENT
  Sex: Female
  Weight: 83.9 kg

DRUGS (3)
  1. NPLATE [Suspect]
     Indication: IDIOPATHIC THROMBOCYTOPENIC PURPURA
     Dosage: 600 A?G, UNK
     Dates: start: 20081014, end: 20100224
  2. IMMUNOGLOBULINS [Concomitant]
  3. NPLATE [Suspect]
     Dates: start: 20081014

REACTIONS (1)
  - HOSPITALISATION [None]
